FAERS Safety Report 4652711-0 (Version None)
Quarter: 2005Q2

REPORT INFORMATION
  Report Type: 
  Country: None (occurrence: None)
  Receive Date: 20050408
  Receipt Date: 20041230
  Transmission Date: 20051028
  Serious: No
  Sender: FDA-Public Use
  Company Number: 236249K04USA

PATIENT
  Age: 29 Year
  Sex: Female

DRUGS (2)
  1. REBIF [Suspect]
     Indication: MULTIPLE SCLEROSIS
     Dosage: 44 MCG, 3 IN 1 WEEKS, SUCUTANEOUS
     Route: 058
     Dates: start: 20040114
  2. NEURONTIN [Concomitant]

REACTIONS (7)
  - BACK PAIN [None]
  - DYSMENORRHOEA [None]
  - MENORRHAGIA [None]
  - MIGRAINE [None]
  - MOBILITY DECREASED [None]
  - PAIN IN EXTREMITY [None]
  - SINUSITIS [None]
